FAERS Safety Report 20532772 (Version 4)
Quarter: 2024Q1

REPORT INFORMATION
  Report Type: Spontaneous
  Country: US (occurrence: US)
  Receive Date: 20220301
  Receipt Date: 20240226
  Transmission Date: 20240410
  Serious: No
  Sender: FDA-Public Use
  Company Number: US-PFIZER INC-2021240041

PATIENT
  Age: 73 Year

DRUGS (2)
  1. PREMARIN [Suspect]
     Active Substance: ESTROGENS, CONJUGATED
     Dosage: UNK
  2. PREMARIN [Suspect]
     Active Substance: ESTROGENS, CONJUGATED
     Dosage: UNK, ALTERNATE DAY (TAKE MY MEDICINE EVERY OTHER DAY)

REACTIONS (3)
  - Feeling abnormal [Unknown]
  - Panic reaction [Unknown]
  - Intentional product misuse [Unknown]
